FAERS Safety Report 11129318 (Version 2)
Quarter: 2015Q2

REPORT INFORMATION
  Report Type: Spontaneous
  Country: US (occurrence: US)
  Receive Date: 20150521
  Receipt Date: 20150616
  Transmission Date: 20150821
  Serious: Yes (Hospitalization, Other)
  Sender: FDA-Public Use
  Company Number: US-PFIZER INC-2015172424

PATIENT
  Age: 55 Year
  Sex: Male

DRUGS (9)
  1. PROTONIX [Concomitant]
     Active Substance: PANTOPRAZOLE SODIUM
     Dosage: 40 MG, DAILY
  2. TIKOSYN [Suspect]
     Active Substance: DOFETILIDE
     Dosage: 250 ?G, 2X/DAY
     Route: 048
  3. TIKOSYN [Suspect]
     Active Substance: DOFETILIDE
     Indication: ATRIAL FIBRILLATION
     Dosage: 500 ?G, UNK
     Route: 048
     Dates: start: 20150517
  4. XARELTO [Concomitant]
     Active Substance: RIVAROXABAN
     Dosage: 20 MG, DAILY
  5. LISINOPRIL. [Concomitant]
     Active Substance: LISINOPRIL
     Dosage: 2.5 MG, DAILY
  6. LISINOPRIL. [Concomitant]
     Active Substance: LISINOPRIL
     Dosage: 5 MG, DAILY
  7. COREG [Concomitant]
     Active Substance: CARVEDILOL
     Dosage: 25 MG, 2X/DAY
  8. SOTALOL. [Concomitant]
     Active Substance: SOTALOL
     Dosage: 80 MG, 2X/DAY
  9. TIKOSYN [Suspect]
     Active Substance: DOFETILIDE
     Dosage: 125 ?G, 2X/DAY
     Route: 048

REACTIONS (1)
  - Electrocardiogram QT prolonged [Recovered/Resolved]

NARRATIVE: CASE EVENT DATE: 20150517
